FAERS Safety Report 16557963 (Version 8)
Quarter: 2020Q3

REPORT INFORMATION
  Report Type: Spontaneous
  Country: JP (occurrence: JP)
  Receive Date: 20190711
  Receipt Date: 20200703
  Transmission Date: 20201102
  Serious: Yes (Hospitalization, Other)
  Sender: FDA-Public Use
  Company Number: JP-BRISTOL-MYERS SQUIBB COMPANY-BMS-2019-066462

PATIENT
  Age: 72 Year
  Sex: Male

DRUGS (2)
  1. OPDIVO [Suspect]
     Active Substance: NIVOLUMAB
     Indication: METASTATIC RENAL CELL CARCINOMA
     Dosage: 240 MILLIGRAM
     Route: 041
     Dates: start: 20190514, end: 20190625
  2. YERVOY [Suspect]
     Active Substance: IPILIMUMAB
     Indication: METASTATIC RENAL CELL CARCINOMA
     Dosage: UNK
     Route: 041
     Dates: start: 20190514, end: 20190625

REACTIONS (12)
  - Uveitis [Unknown]
  - Malaise [Unknown]
  - Pyrexia [Recovered/Resolved]
  - Headache [Unknown]
  - Drug-induced liver injury [Recovered/Resolved]
  - Hypophysitis [Unknown]
  - Secondary adrenocortical insufficiency [Unknown]
  - Hypopituitarism [Unknown]
  - Thyroiditis [Recovering/Resolving]
  - Hypothalamo-pituitary disorder [Unknown]
  - Pituitary enlargement [Recovered/Resolved]
  - Diarrhoea [Unknown]

NARRATIVE: CASE EVENT DATE: 201907
